FAERS Safety Report 7706945-9 (Version None)
Quarter: 2011Q3

REPORT INFORMATION
  Report Type: 
  Country: None (occurrence: None)
  Receive Date: 20110818
  Receipt Date: 20110803
  Transmission Date: 20111222
  Serious: Yes (Hospitalization)
  Sender: FDA-Public Use
  Company Number: 2011027566

PATIENT
  Age: 74 Year
  Sex: Male

DRUGS (3)
  1. DALTEPARIN SODIUM [Suspect]
     Indication: LUNG NEOPLASM MALIGNANT
     Dates: start: 20110117, end: 20110131
  2. *CARBOPLATIN (CARBOPLATIN) UNKNOWN [Suspect]
     Dosage: 640 MG, SINGLE, INTRAVENOUS
     Route: 042
     Dates: start: 20110118, end: 20110118
  3. DEXAMETHASONE [Concomitant]

REACTIONS (7)
  - HAEMOGLOBIN DECREASED [None]
  - INFECTION [None]
  - NEUTROPENIA [None]
  - MALAISE [None]
  - SUPERIOR VENA CAVA SYNDROME [None]
  - THROMBOCYTOPENIA [None]
  - DYSPNOEA [None]
